FAERS Safety Report 10039441 (Version 1)
Quarter: 2014Q1

REPORT INFORMATION
  Report Type: Spontaneous
  Country: US (occurrence: None)
  Receive Date: 20140306
  Receipt Date: 20140306
  Transmission Date: 20141002
  Serious: Yes (Other)
  Sender: FDA-Public Use
  Company Number: 163-21880-10011150

PATIENT
  Age: 75 Year
  Sex: Male

DRUGS (5)
  1. REVLIMID [Suspect]
     Indication: MYELODYSPLASTIC SYNDROME
     Route: 048
     Dates: start: 20091201, end: 20100204
  2. PROCRIT (ERYTHROPOIETIN) (UNKNOWN) [Concomitant]
  3. PLATELETS (PLATELETS) (UNKNOWN) [Concomitant]
  4. LEVAQUIN (LEVOFLOXACIN) (INJECTION) [Concomitant]
  5. PACKED CELLS (BLOOD CELLS, PACKED HUMAN) (UNKNOWN) [Concomitant]

REACTIONS (4)
  - Pancytopenia [None]
  - Red blood cell count increased [None]
  - White blood cell count decreased [None]
  - Pruritus [None]
